FAERS Safety Report 8073459-9 (Version None)
Quarter: 2012Q1

REPORT INFORMATION
  Report Type: 
  Country: None (occurrence: None)
  Receive Date: 20120126
  Receipt Date: 20120126
  Transmission Date: 20120608
  Serious: No
  Sender: FDA-Public Use
  Company Number: None

PATIENT
  Sex: Male
  Weight: 86.182 kg

DRUGS (2)
  1. ZIACAM [Suspect]
     Indication: NASOPHARYNGITIS
  2. ZIACAM [Suspect]
     Indication: PROPHYLAXIS

REACTIONS (2)
  - DYSGEUSIA [None]
  - PAROSMIA [None]
